FAERS Safety Report 10377300 (Version 1)
Quarter: 2014Q3

REPORT INFORMATION
  Report Type: Spontaneous
  Country: US (occurrence: US)
  Receive Date: 20140812
  Receipt Date: 20140812
  Transmission Date: 20150326
  Serious: Yes (Other)
  Sender: FDA-Public Use
  Company Number: PHHY2014US095313

PATIENT
  Age: 10 Year
  Sex: Male

DRUGS (2)
  1. TACROLIMUS. [Suspect]
     Active Substance: TACROLIMUS
  2. THIAMINE [Concomitant]
     Active Substance: THIAMINE
     Dosage: 50 MG
     Route: 042

REACTIONS (7)
  - Hypotension [Unknown]
  - Mental status changes [Unknown]
  - Toxicity to various agents [Unknown]
  - Listless [Unknown]
  - Hyperammonaemia [Unknown]
  - Lactic acidosis [Recovered/Resolved]
  - Tachycardia [Unknown]
